FAERS Safety Report 16007302 (Version 1)
Quarter: 2019Q1

REPORT INFORMATION
  Report Type: Spontaneous
  Country: FR (occurrence: FR)
  Receive Date: 20190226
  Receipt Date: 20190226
  Transmission Date: 20190418
  Serious: Yes (Hospitalization)
  Sender: FDA-Public Use
  Company Number: FR-MYLANLABS-2019M1016144

PATIENT
  Age: 16 Year
  Sex: Female
  Weight: 60 kg

DRUGS (5)
  1. AUGMENTIN [Suspect]
     Active Substance: AMOXICILLIN\CLAVULANATE POTASSIUM
     Indication: ANTIBIOTIC PROPHYLAXIS
     Dosage: 3 GRAM, QD
     Route: 042
     Dates: start: 20180720, end: 20180723
  2. KETOPROFEN. [Suspect]
     Active Substance: KETOPROFEN
     Indication: PAIN
     Dosage: 200 MILLIGRAM, QD
     Route: 048
     Dates: start: 20180720, end: 20180723
  3. ONDANSETRON [Concomitant]
     Active Substance: ONDANSETRON
     Dosage: UNK
  4. XENETIX [Suspect]
     Active Substance: IOBITRIDOL
     Indication: SCAN WITH CONTRAST
     Dosage: 60 MILLILITER
     Route: 042
     Dates: start: 20180721, end: 20180721
  5. CORTANCYL [Suspect]
     Active Substance: PREDNISONE
     Indication: ANTIINFLAMMATORY THERAPY
     Dosage: 120 MILLIGRAM, QD
     Route: 048
     Dates: start: 20180721, end: 20180722

REACTIONS (1)
  - Acute generalised exanthematous pustulosis [Recovering/Resolving]

NARRATIVE: CASE EVENT DATE: 20180721
